FAERS Safety Report 5190273-2 (Version None)
Quarter: 2006Q4

REPORT INFORMATION
  Report Type: 
  Country: None (occurrence: None)
  Receive Date: 20061222
  Receipt Date: 20060829
  Transmission Date: 20070319
  Serious: No
  Sender: FDA-Public Use
  Company Number: US-AMGEN-KDL191673

PATIENT
  Sex: Female

DRUGS (5)
  1. ARANESP [Suspect]
     Indication: MYELODYSPLASTIC SYNDROME
     Dates: start: 20060822
  2. SYNTHROID [Concomitant]
  3. PRILOSEC [Concomitant]
  4. ASPIRIN [Concomitant]
  5. HYDROXYUREA [Concomitant]

REACTIONS (1)
  - PYREXIA [None]
